FAERS Safety Report 7352957-7 (Version None)
Quarter: 2011Q1

REPORT INFORMATION
  Report Type: 
  Country: None (occurrence: None)
  Receive Date: 20110315
  Receipt Date: 20110310
  Transmission Date: 20110831
  Serious: Yes (Other)
  Sender: FDA-Public Use
  Company Number: SE-ROCHE-763275

PATIENT
  Age: 66 Year
  Sex: Male

DRUGS (8)
  1. ALPHAGAN [Concomitant]
     Dosage: ALPHAGAN EYE DROPS, SOL 0,2%
  2. ATENOLOL [Concomitant]
  3. AMLODIPINE [Concomitant]
  4. XELODA [Suspect]
     Route: 048
     Dates: start: 20090921, end: 20100216
  5. OXALIPLATIN [Suspect]
     Dosage: OXALIPLATIN ACTAVIS POWD F SOL F INF 5 MG/ML
     Route: 042
     Dates: start: 20090921, end: 20100216
  6. TIMOSAN [Concomitant]
     Dosage: TIMOSAN EYE DROPS, SOL, SINGLE-DOSE CONTAINER, PROLONGED RELEASE 1 MG/ML
  7. XALATAN [Concomitant]
     Dosage: XALATAN EYD DROPS SOL 50 MIKROG/ML
  8. SIMVASTATIN [Concomitant]

REACTIONS (5)
  - GLAUCOMA [None]
  - BLINDNESS [None]
  - LACRIMATION INCREASED [None]
  - CONDITION AGGRAVATED [None]
  - RHINORRHOEA [None]
